FAERS Safety Report 20380506 (Version 2)
Quarter: 2022Q1

REPORT INFORMATION
  Report Type: Report from Study
  Country: US (occurrence: US)
  Receive Date: 20220127
  Receipt Date: 20220224
  Transmission Date: 20220424
  Serious: Yes (Death, Hospitalization, Other)
  Sender: FDA-Public Use
  Company Number: US-ACADIA PHARMACEUTICALS INC.-ACA-2022-PIM-000206

PATIENT
  Sex: Male

DRUGS (4)
  1. NUPLAZID [Suspect]
     Active Substance: PIMAVANSERIN TARTRATE
     Indication: Parkinson^s disease
     Dosage: 34 MILLIGRAM, QD, EACH NIGHT
     Route: 048
     Dates: end: 20220113
  2. ASPIRIN [Concomitant]
     Active Substance: ASPIRIN
  3. MORNIFLUMATE [Concomitant]
     Active Substance: MORNIFLUMATE
  4. SENNA [Concomitant]
     Active Substance: SENNA LEAF\SENNOSIDES\SENNOSIDES A AND B

REACTIONS (1)
  - COVID-19 pneumonia [Recovered/Resolved]
